FAERS Safety Report 5062982-7 (Version None)
Quarter: 2006Q3

REPORT INFORMATION
  Report Type: 
  Country: None (occurrence: None)
  Receive Date: 20060724
  Receipt Date: 20060713
  Transmission Date: 20061208
  Serious: Yes (Hospitalization)
  Sender: FDA-Public Use
  Company Number: 2006-07-0898

PATIENT
  Age: 51 Year
  Sex: Female

DRUGS (5)
  1. PEG-INTRON [Suspect]
     Indication: HEPATITIS C
     Dosage: SUBCUTANEOUS
     Route: 058
     Dates: start: 20060225
  2. RIBAVIRIN [Suspect]
     Indication: HEPATITIS C
     Dosage: ORAL
     Route: 048
     Dates: start: 20060225
  3. ADVAIR                (SALMETEROL/FLUTICASONE) DISC [Concomitant]
  4. SINGULAIR [Concomitant]
  5. XOPEMEX            (LEVALBUTEROL HCL) [Concomitant]

REACTIONS (7)
  - BLINDNESS TRANSIENT [None]
  - FATIGUE [None]
  - MIGRAINE [None]
  - PAIN IN EXTREMITY [None]
  - VISION BLURRED [None]
  - VISUAL DISTURBANCE [None]
  - WHITE BLOOD CELL COUNT DECREASED [None]
